FAERS Safety Report 14378096 (Version 1)
Quarter: 2018Q1

REPORT INFORMATION
  Report Type: Spontaneous
  Country: GB (occurrence: GB)
  Receive Date: 20180111
  Receipt Date: 20180111
  Transmission Date: 20180509
  Serious: Yes (Other)
  Sender: FDA-Public Use
  Company Number: GB-MYLANLABS-2017M1078133

PATIENT
  Age: 1 Year
  Sex: Female

DRUGS (2)
  1. KLARICID PAEDIATRIC SUSPENSION 125 MG/5ML GRANULES FOR ORAL SUSPENSION [Suspect]
     Active Substance: CLARITHROMYCIN
     Indication: PHARYNGITIS
     Dosage: 2.5 ML, BID
     Route: 048
     Dates: start: 20171205
  2. KLARICID PAEDIATRIC SUSPENSION 125 MG/5ML GRANULES FOR ORAL SUSPENSION [Suspect]
     Active Substance: CLARITHROMYCIN
     Indication: EAR INFECTION

REACTIONS (2)
  - Product use complaint [Unknown]
  - Product taste abnormal [Unknown]

NARRATIVE: CASE EVENT DATE: 20171205
